FAERS Safety Report 9306973 (Version 1)
Quarter: 2013Q2

REPORT INFORMATION
  Report Type: Spontaneous
  Country: US (occurrence: US)
  Receive Date: 20130523
  Receipt Date: 20130523
  Transmission Date: 20140414
  Serious: No
  Sender: FDA-Public Use
  Company Number: US-AMGEN-USASP2013010689

PATIENT
  Age: 77 Year
  Sex: Female

DRUGS (4)
  1. ARANESP [Suspect]
     Indication: PRODUCT USED FOR UNKNOWN INDICATION
     Dosage: 60 MUG, UNK
     Dates: start: 20130118
  2. ADVAIR [Concomitant]
  3. BENICAR [Concomitant]
  4. ATENOLOL [Concomitant]

REACTIONS (7)
  - Dyspnoea [Not Recovered/Not Resolved]
  - Blood pressure abnormal [Unknown]
  - Influenza like illness [Not Recovered/Not Resolved]
  - Oropharyngeal pain [Unknown]
  - Odynophagia [Unknown]
  - Cough [Unknown]
  - Feeling abnormal [Unknown]
